FAERS Safety Report 25652614 (Version 3)
Quarter: 2025Q4

REPORT INFORMATION
  Report Type: Report from Study
  Country: US (occurrence: US)
  Receive Date: 20250807
  Receipt Date: 20251024
  Transmission Date: 20260118
  Serious: Yes (Other)
  Sender: ACADIA PHARMACEUTICALS
  Company Number: US-ACADIA PHARMACEUTICALS INC.-ACA-2025-PIM-008943

PATIENT
  Age: 81 Year
  Sex: Male

DRUGS (14)
  1. NUPLAZID [Suspect]
     Active Substance: PIMAVANSERIN TARTRATE
     Indication: Parkinson^s disease psychosis
     Dosage: 34 MILLIGRAM, QD
     Route: 048
  2. NUPLAZID [Suspect]
     Active Substance: PIMAVANSERIN TARTRATE
     Indication: Hallucination
     Dosage: 34 MILLIGRAM, QD
     Route: 048
     Dates: start: 20250813
  3. METOPROLOL [Concomitant]
     Active Substance: METOPROLOL
  4. TRAVOPROST [Concomitant]
     Active Substance: TRAVOPROST
  5. FINASTERIDE [Concomitant]
     Active Substance: FINASTERIDE
  6. IRON [Concomitant]
     Active Substance: IRON
  7. LOSARTAN [Concomitant]
     Active Substance: LOSARTAN
  8. VITAMIN B12 [Concomitant]
     Active Substance: CYANOCOBALAMIN
  9. NIFEDIPINE [Concomitant]
     Active Substance: NIFEDIPINE
  10. ASPIRIN [Concomitant]
     Active Substance: ASPIRIN
  11. CLONIDINE [Concomitant]
     Active Substance: CLONIDINE
  12. CARBIDOPA\LEVODOPA [Concomitant]
     Active Substance: CARBIDOPA\LEVODOPA
  13. LEVETIRACETAM [Concomitant]
     Active Substance: LEVETIRACETAM
  14. VITAMIN D3 [Concomitant]
     Active Substance: CHOLECALCIFEROL

REACTIONS (9)
  - Dementia Alzheimer^s type [Not Recovered/Not Resolved]
  - Hallucination [Not Recovered/Not Resolved]
  - Feeling abnormal [Unknown]
  - Amnesia [Not Recovered/Not Resolved]
  - Delusion [Not Recovered/Not Resolved]
  - Fumbling [Not Recovered/Not Resolved]
  - Middle insomnia [Not Recovered/Not Resolved]
  - Confusional state [Not Recovered/Not Resolved]
  - Gait disturbance [Not Recovered/Not Resolved]

NARRATIVE: CASE EVENT DATE: 20250813
